FAERS Safety Report 9624027 (Version 1)
Quarter: 2013Q4

REPORT INFORMATION
  Report Type: Spontaneous
  Country: PT (occurrence: None)
  Receive Date: 20131010
  Receipt Date: 20131010
  Transmission Date: 20140711
  Serious: Yes (Other)
  Sender: FDA-Public Use
  Company Number: B0928868A

PATIENT
  Age: 72 Year
  Sex: Male

DRUGS (2)
  1. ROPINIROLE HYDROCHLORIDE [Suspect]
     Indication: PARKINSON^S DISEASE
  2. CO-CARELDOPA [Suspect]
     Indication: PARKINSON^S DISEASE

REACTIONS (3)
  - Jealous delusion [None]
  - Cognitive disorder [None]
  - Hypersexuality [None]
